FAERS Safety Report 19219964 (Version 5)
Quarter: 2021Q3

REPORT INFORMATION
  Report Type: Spontaneous
  Country: US (occurrence: US)
  Receive Date: 20210506
  Receipt Date: 20210914
  Transmission Date: 20211014
  Serious: No
  Sender: FDA-Public Use
  Company Number: US-BRISTOL-MYERS SQUIBB COMPANY-BMS-2021-042787

PATIENT
  Age: 56 Year
  Sex: Female

DRUGS (4)
  1. ORENCIA [Suspect]
     Active Substance: ABATACEPT
     Indication: MULTIPLE SCLEROSIS
     Dosage: 125 MILLIGRAM, QWK
     Route: 058
     Dates: start: 20210423
  2. ORENCIA [Suspect]
     Active Substance: ABATACEPT
     Indication: FIBROMYALGIA
     Dosage: 125 MILLIGRAM, QWK
     Route: 058
     Dates: start: 20210422
  3. GILENYA [Suspect]
     Active Substance: FINGOLIMOD HYDROCHLORIDE
     Indication: PRODUCT USED FOR UNKNOWN INDICATION
     Dosage: UNK
     Route: 065
  4. ORENCIA [Suspect]
     Active Substance: ABATACEPT
     Indication: RHEUMATOID ARTHRITIS
     Dosage: 125 MILLIGRAM, QWK
     Route: 058
     Dates: start: 202004

REACTIONS (6)
  - Eye pain [Unknown]
  - Headache [Unknown]
  - Rheumatoid arthritis [Unknown]
  - Photosensitivity reaction [Unknown]
  - Ear pain [Unknown]
  - Vision blurred [Unknown]

NARRATIVE: CASE EVENT DATE: 20210809
